FAERS Safety Report 23791166 (Version 1)
Quarter: 2024Q2

REPORT INFORMATION
  Report Type: Spontaneous
  Country: US (occurrence: US)
  Receive Date: 20240428
  Receipt Date: 20240428
  Transmission Date: 20240715
  Serious: No
  Sender: FDA-Public Use
  Company Number: US-JNJFOC-20240467293

PATIENT
  Age: 64 Year
  Sex: Male

DRUGS (1)
  1. ERLEADA [Suspect]
     Active Substance: APALUTAMIDE
     Indication: Prostate cancer
     Route: 048

REACTIONS (3)
  - Hypertension [Unknown]
  - Weight increased [Unknown]
  - Product dose omission issue [Unknown]
